FAERS Safety Report 8607134 (Version 6)
Quarter: 2014Q2

REPORT INFORMATION
  Report Type: Spontaneous
  Country: US (occurrence: US)
  Receive Date: 20120611
  Receipt Date: 20140422
  Transmission Date: 20141212
  Serious: Yes (Hospitalization, Disabling, Other)
  Sender: FDA-Public Use
  Company Number: US-ASTRAZENECA-2012SE35143

PATIENT
  Age: 38 Year
  Sex: Female

DRUGS (17)
  1. NEXIUM [Suspect]
     Indication: GASTROOESOPHAGEAL REFLUX DISEASE
     Route: 048
     Dates: start: 2000
  2. NEXIUM [Suspect]
     Indication: GASTROOESOPHAGEAL REFLUX DISEASE
     Route: 048
     Dates: start: 2004, end: 2011
  3. NEXIUM [Suspect]
     Indication: GASTROOESOPHAGEAL REFLUX DISEASE
     Route: 048
     Dates: start: 20061107
  4. NEXIUM [Suspect]
     Indication: GASTROOESOPHAGEAL REFLUX DISEASE
     Route: 048
     Dates: start: 20110425
  5. ZYRTEC [Concomitant]
     Dates: start: 20061107
  6. PREMARIN [Concomitant]
     Dates: start: 20110323
  7. WELLBUTRIN XL [Concomitant]
     Dates: start: 20110418
  8. CEFADROXIL [Concomitant]
     Dates: start: 20090227
  9. DIAZEPAM [Concomitant]
     Dates: start: 20090227
  10. HYDROCO/ACETAMINOP [Concomitant]
     Dates: start: 20090227
  11. OXYCODONE HCL [Concomitant]
     Dates: start: 20060515
  12. NAPROXEN [Concomitant]
     Dates: start: 20060515
  13. PREDNISONE [Concomitant]
     Dates: start: 20071101
  14. EFFEXOR XR [Concomitant]
     Dates: start: 20091006
  15. CEPHALEXIN [Concomitant]
     Dates: start: 20091015
  16. TRAZODONE [Concomitant]
     Dates: start: 20100618
  17. LUNESTA [Concomitant]
     Dates: start: 20101213

REACTIONS (17)
  - Wrist fracture [Unknown]
  - Breast cancer [Unknown]
  - Upper limb fracture [Unknown]
  - Osteoporosis [Unknown]
  - Radius fracture [Unknown]
  - Fall [Unknown]
  - Ankle fracture [Unknown]
  - Foot fracture [Unknown]
  - Arthritis [Unknown]
  - Diabetes mellitus [Unknown]
  - Gait disturbance [Unknown]
  - Ulna fracture [Unknown]
  - Chondropathy [Unknown]
  - Osteoarthritis [Unknown]
  - Ligament rupture [Unknown]
  - Joint injury [Unknown]
  - Depression [Unknown]
